FAERS Safety Report 9625444 (Version 1)
Quarter: 2013Q4

REPORT INFORMATION
  Report Type: Spontaneous
  Country: US (occurrence: None)
  Receive Date: 20131015
  Receipt Date: 20131015
  Transmission Date: 20140711
  Serious: Yes (Hospitalization)
  Sender: FDA-Public Use
  Company Number: None

PATIENT
  Age: 54 Year
  Sex: Male

DRUGS (2)
  1. VANCOMYCIN [Suspect]
     Indication: OSTEOMYELITIS
     Route: 042
     Dates: start: 20130714, end: 20130819
  2. PIPERACILLIN / TAZOBACTAM [Suspect]
     Indication: OSTEOMYELITIS
     Route: 042
     Dates: start: 20130713, end: 20130816

REACTIONS (7)
  - Rash [None]
  - Swelling [None]
  - Pruritus [None]
  - Pyrexia [None]
  - Chills [None]
  - Urticaria [None]
  - Eosinophil count increased [None]
